FAERS Safety Report 6420566-X (Version None)
Quarter: 2009Q4

REPORT INFORMATION
  Report Type: 
  Country: None (occurrence: None)
  Receive Date: 20091027
  Receipt Date: 20091012
  Transmission Date: 20100525
  Serious: Yes (Death)
  Sender: FDA-Public Use
  Company Number: JHP200900327

PATIENT

DRUGS (3)
  1. COLY-MYCIN M [Suspect]
     Indication: MULTIPLE-DRUG RESISTANCE
     Dosage: INHALATION
     Route: 055
  2. COLY-MYCIN M [Suspect]
     Indication: PNEUMONIA BACTERIAL
     Dosage: INHALATION
     Route: 055
  3. ANTIBIOTICS [Concomitant]

REACTIONS (1)
  - OFF LABEL USE [None]
